FAERS Safety Report 5390613-5 (Version None)
Quarter: 2007Q3

REPORT INFORMATION
  Report Type: 
  Country: None (occurrence: None)
  Receive Date: 20070718
  Receipt Date: 20060622
  Transmission Date: 20080115
  Serious: Yes (Hospitalization, Congenital Anomaly, Other)
  Sender: FDA-Public Use
  Company Number: US-PFIZER INC-2005156610

PATIENT
  Sex: Male
  Weight: 6.9 kg

DRUGS (8)
  1. ZYRTEC [Suspect]
     Indication: HYPERSENSITIVITY
  2. DILANTIN [Suspect]
     Indication: EPILEPSY
  3. KEPPRA [Suspect]
     Dosage: DAILY DOSE:2000MG
     Dates: start: 20040901, end: 20050516
  4. PAXIL CR [Suspect]
     Indication: DEPRESSION
  5. SEROQUEL [Suspect]
     Indication: SLEEP DISORDER
  6. CITRUCEL [Suspect]
  7. FOLIC ACID [Concomitant]
     Indication: PRENATAL CARE
  8. FOLIC ACID [Concomitant]
     Indication: ANAEMIA

REACTIONS (6)
  - ADRENAL INSUFFICIENCY [None]
  - ADRENOGENITAL SYNDROME [None]
  - ARNOLD-CHIARI MALFORMATION [None]
  - DRUG EXPOSURE DURING PREGNANCY [None]
  - PREMATURE BABY [None]
  - SPEECH DISORDER DEVELOPMENTAL [None]
